FAERS Safety Report 21331689 (Version 1)
Quarter: 2022Q3

REPORT INFORMATION
  Report Type: Spontaneous
  Country: AR (occurrence: None)
  Receive Date: 20220914
  Receipt Date: 20220914
  Transmission Date: 20221026
  Serious: Yes (Other)
  Sender: FDA-Public Use
  Company Number: 2022A314401

PATIENT
  Age: 81 Year
  Sex: Female

DRUGS (2)
  1. FULVESTRANT [Suspect]
     Active Substance: FULVESTRANT
     Route: 030
  2. IBRANCE [Suspect]
     Active Substance: PALBOCICLIB
     Indication: Breast cancer metastatic
     Dosage: CAPSULE 125 MG, CYCLIC(DAILY SCHEME 3X1)
     Route: 048
     Dates: start: 20200315

REACTIONS (3)
  - Laryngospasm [Unknown]
  - Full blood count decreased [Unknown]
  - Intentional product misuse [Unknown]
